FAERS Safety Report 5662011-8 (Version None)
Quarter: 2008Q1

REPORT INFORMATION
  Report Type: 
  Country: None (occurrence: None)
  Receive Date: 20080205
  Receipt Date: 20061220
  Transmission Date: 20080703
  Serious: Yes (Hospitalization)
  Sender: FDA-Public Use
  Company Number: MEDI-0005129

PATIENT
  Age: 80 Year
  Sex: Male
  Weight: 59.8748 kg

DRUGS (7)
  1. ETHYOL [Suspect]
     Indication: PROSTATE CANCER
     Dosage: 500 MG, 1 IN 1 D, SUBCUTANEOUS
     Route: 058
     Dates: start: 20061113, end: 20061113
  2. CADUET (ATORVASTATIN CALCIUM, AMLODIPINE BESILATE) [Concomitant]
  3. CLONIDINE [Concomitant]
  4. ASPIRIN [Concomitant]
  5. AVALIDE [Concomitant]
  6. TOPROL-XL [Concomitant]
  7. ASPIRIN [Concomitant]

REACTIONS (2)
  - DEPRESSED LEVEL OF CONSCIOUSNESS [None]
  - HYPOTENSION [None]
